FAERS Safety Report 12810058 (Version 1)
Quarter: 2016Q4

REPORT INFORMATION
  Report Type: Spontaneous
  Country: US (occurrence: US)
  Receive Date: 20161005
  Receipt Date: 20161005
  Transmission Date: 20170207
  Serious: No
  Sender: FDA-Public Use
  Company Number: US-PFIZER INC-2016459024

PATIENT
  Age: 72 Year
  Sex: Female

DRUGS (5)
  1. IODINE. [Suspect]
     Active Substance: IODINE
  2. MORPHINE SULFATE. [Suspect]
     Active Substance: MORPHINE SULFATE
  3. CODEINE [Suspect]
     Active Substance: CODEINE
  4. DEMEROL [Suspect]
     Active Substance: MEPERIDINE HYDROCHLORIDE
  5. LEVAQUIN [Suspect]
     Active Substance: LEVOFLOXACIN

REACTIONS (1)
  - Drug hypersensitivity [Not Recovered/Not Resolved]
